FAERS Safety Report 8471879-1 (Version None)
Quarter: 2012Q2

REPORT INFORMATION
  Report Type: 
  Country: None (occurrence: None)
  Receive Date: 20120627
  Receipt Date: 20120625
  Transmission Date: 20120825
  Serious: Yes (Death)
  Sender: FDA-Public Use
  Company Number: DE-ABBOTT-12P-062-0949117-00

PATIENT
  Age: 52 Year
  Sex: Female
  Weight: 58 kg

DRUGS (4)
  1. PREDNISOLONE [Concomitant]
     Indication: RHEUMATOID ARTHRITIS
     Dosage: 5 MG DAILY
  2. HYDROXYCHLOROQUINE SULFATE [Concomitant]
     Indication: RHEUMATOID ARTHRITIS
     Dosage: 300 MG DAILY
  3. ARAVA [Concomitant]
     Indication: RHEUMATOID ARTHRITIS
     Dosage: 20 MG DAILY
     Route: 048
  4. HUMIRA [Suspect]
     Indication: RHEUMATOID ARTHRITIS
     Route: 058
     Dates: start: 20100913, end: 20110428

REACTIONS (1)
  - DEATH [None]
